FAERS Safety Report 6059742-7 (Version None)
Quarter: 2009Q1

REPORT INFORMATION
  Report Type: 
  Country: None (occurrence: None)
  Receive Date: 20090130
  Receipt Date: 20090121
  Transmission Date: 20090719
  Serious: Yes (Other)
  Sender: FDA-Public Use
  Company Number: FR-PFIZER INC-2008155369

PATIENT

DRUGS (1)
  1. TAHOR [Suspect]
     Indication: HYPERCHOLESTEROLAEMIA
     Dosage: 10 MG, 1X/DAY
     Dates: start: 20030101, end: 20080101

REACTIONS (10)
  - ARTHRALGIA [None]
  - DEPRESSION [None]
  - FATIGUE [None]
  - MUSCULOSKELETAL PAIN [None]
  - MYALGIA [None]
  - PAIN [None]
  - PARAESTHESIA [None]
  - SUICIDAL IDEATION [None]
  - TENDON PAIN [None]
  - WEIGHT DECREASED [None]
